FAERS Safety Report 7504032-6 (Version None)
Quarter: 2011Q2

REPORT INFORMATION
  Report Type: 
  Country: None (occurrence: None)
  Receive Date: 20110525
  Receipt Date: 20110523
  Transmission Date: 20111010
  Serious: No
  Sender: FDA-Public Use
  Company Number: US-TEVA-282354USA

PATIENT
  Sex: Female
  Weight: 70.824 kg

DRUGS (2)
  1. PLAN B ONE-STEP [Suspect]
     Indication: POST COITAL CONTRACEPTION
     Dosage: 1.5 MILLIGRAM;
     Route: 048
     Dates: start: 20110509, end: 20110509
  2. CYMBALTA [Concomitant]
     Indication: ANXIETY

REACTIONS (3)
  - NIPPLE PAIN [None]
  - HEADACHE [None]
  - NIPPLE DISORDER [None]
